FAERS Safety Report 9204047 (Version 1)
Quarter: 2013Q1

REPORT INFORMATION
  Report Type: Spontaneous
  Country: US (occurrence: None)
  Receive Date: 20120709
  Receipt Date: 20120709
  Transmission Date: 20140127
  Serious: Yes (Other)
  Sender: FDA-Public Use
  Company Number: PHHY2011US54569

PATIENT
  Age: 60 Year
  Sex: Female
  Weight: 102.5 kg

DRUGS (8)
  1. GLEEVEC (IMATINIB) [Suspect]
     Route: 048
  2. FUROSEMIDE TABLET (FUROSEMIDE) TABLET [Concomitant]
  3. PROTONIX ^PHARMACIA^ (PANTOPRAZOLE) [Concomitant]
  4. LIPITOR (ATORVASTATIN CALCIUM) [Concomitant]
  5. METFORMIN (METFORMIN) [Concomitant]
  6. SYMBICORT TURBUHALER ^DRACO^ (BUDESONIDE, FORMOTEROL FUMARATE) [Concomitant]
  7. KLOR-CON (POTASSIUM CHLORIDE) [Concomitant]
  8. ALBUTEROL (SALBUTAMOL) [Concomitant]

REACTIONS (3)
  - Haematemesis [None]
  - Nausea [None]
  - Vomiting [None]
